FAERS Safety Report 6237583-5 (Version None)
Quarter: 2009Q2

REPORT INFORMATION
  Report Type: 
  Country: None (occurrence: None)
  Receive Date: 20090617
  Receipt Date: 20090605
  Transmission Date: 20091009
  Serious: Yes (Hospitalization)
  Sender: FDA-Public Use
  Company Number: 2009-01922

PATIENT
  Age: 64 Year
  Sex: Male
  Weight: 50.2 kg

DRUGS (6)
  1. VELCADE [Suspect]
     Indication: MULTIPLE MYELOMA
     Dosage: 1.5 MG/M2; INTRAVENOUS
     Route: 042
     Dates: start: 20090508, end: 20090508
  2. CCI-779(TEMSIROLIMUS) INJECTION [Suspect]
     Indication: MULTIPLE MYELOMA
     Dosage: 25 MG, INTRAVENOUS
     Route: 042
     Dates: start: 20090508, end: 20090508
  3. COUMADIN [Concomitant]
  4. AMBIEN [Concomitant]
  5. ATIVAN [Concomitant]
  6. LIPITOR [Concomitant]

REACTIONS (17)
  - AORTIC STENOSIS [None]
  - BLOOD PRESSURE SYSTOLIC INCREASED [None]
  - DIVERTICULITIS [None]
  - DIZZINESS POSTURAL [None]
  - ENTERITIS [None]
  - GRAFT VERSUS HOST DISEASE [None]
  - HAEMORRHAGE [None]
  - ILEITIS [None]
  - ILEUS [None]
  - INFLAMMATORY BOWEL DISEASE [None]
  - INTERNATIONAL NORMALISED RATIO INCREASED [None]
  - ISCHAEMIA [None]
  - PANCREATITIS [None]
  - SMALL BOWEL ANGIOEDEMA [None]
  - SMALL INTESTINAL OBSTRUCTION [None]
  - VASCULITIS [None]
  - WHITE BLOOD CELL COUNT DECREASED [None]
